FAERS Safety Report 21204916 (Version 1)
Quarter: 2022Q3

REPORT INFORMATION
  Report Type: Report from Study
  Country: US (occurrence: US)
  Receive Date: 20220812
  Receipt Date: 20220812
  Transmission Date: 20221027
  Serious: Yes (Other)
  Sender: FDA-Public Use
  Company Number: US-ABBVIE-22K-163-4500185-00

PATIENT
  Sex: Male

DRUGS (1)
  1. HUMIRA [Suspect]
     Active Substance: ADALIMUMAB
     Indication: Uveitis
     Route: 058

REACTIONS (6)
  - Blindness unilateral [Unknown]
  - Brain neoplasm malignant [Recovering/Resolving]
  - Mucosal disorder [Unknown]
  - Visual acuity reduced [Unknown]
  - Dysgeusia [Unknown]
  - Dyspnoea [Recovered/Resolved]
